FAERS Safety Report 8886128 (Version 1)
Quarter: 2012Q4

REPORT INFORMATION
  Report Type: 
  Country: US (occurrence: US)
  Receive Date: 20121105
  Receipt Date: 20121105
  Transmission Date: 20130627
  Serious: Yes (Death, Hospitalization)
  Sender: FDA-Public Use
  Company Number: US-PERRIGO-12US009371

PATIENT
  Age: 54 Year
  Sex: Female
  Weight: 36.2 kg

DRUGS (1)
  1. ACETAMINOPHEN 650MG ER 544 [Suspect]
     Indication: PRODUCT USED FOR UNKNOWN INDICATION
     Dosage: UNK, UNK
     Route: 048

REACTIONS (7)
  - Multi-organ failure [Fatal]
  - Metabolic acidosis [Not Recovered/Not Resolved]
  - Amino acid metabolism disorder [Not Recovered/Not Resolved]
  - Mental status changes [Unknown]
  - Hypotension [Unknown]
  - Unresponsive to stimuli [Unknown]
  - Transaminases increased [Unknown]
